FAERS Safety Report 5825666-0 (Version None)
Quarter: 2008Q3

REPORT INFORMATION
  Report Type: 
  Country: None (occurrence: None)
  Receive Date: 20080729
  Receipt Date: 20080725
  Transmission Date: 20090109
  Serious: Yes (Death, Congenital Anomaly, Other)
  Sender: FDA-Public Use
  Company Number: GB-TEVA-151600ISR

PATIENT
  Sex: Male

DRUGS (3)
  1. PREDNISOLONE [Suspect]
     Indication: ROSACEA
     Route: 064
  2. ERYTHROMYCIN [Suspect]
     Indication: ROSACEA
     Route: 062
  3. INSULIN [Suspect]
     Route: 064

REACTIONS (2)
  - INTRA-UTERINE DEATH [None]
  - OLIGOHYDRAMNIOS [None]
